FAERS Safety Report 14929163 (Version 1)
Quarter: 2018Q2

REPORT INFORMATION
  Report Type: Spontaneous
  Country: US (occurrence: US)
  Receive Date: 20180523
  Receipt Date: 20180523
  Transmission Date: 20180711
  Serious: No
  Sender: FDA-Public Use
  Company Number: US-TARO-2017TAR00714

PATIENT
  Age: 77 Year
  Sex: Female
  Weight: 63.49 kg

DRUGS (11)
  1. LOVAZA [Concomitant]
     Active Substance: OMEGA-3-ACID ETHYL ESTERS
     Dosage: UNK, 2X/DAY
  2. IMIQUIMOD CREAM 5% [Suspect]
     Active Substance: IMIQUIMOD
     Dosage: UNK, 2X/WEEK
     Route: 061
     Dates: start: 20170803, end: 20170816
  3. METOPROLOL. [Concomitant]
     Active Substance: METOPROLOL
  4. MAXALT [Concomitant]
     Active Substance: RIZATRIPTAN BENZOATE
  5. LEVOTHYROXINE. [Concomitant]
     Active Substance: LEVOTHYROXINE
  6. ^IMPROZOLE^ [Concomitant]
  7. LOSARTAN. [Concomitant]
     Active Substance: LOSARTAN
  8. IMIQUIMOD CREAM 5% [Suspect]
     Active Substance: IMIQUIMOD
     Dosage: UNK, EVERY 48 HOURS
     Route: 061
     Dates: start: 20170817, end: 20170817
  9. METFORMIN [Concomitant]
     Active Substance: METFORMIN HYDROCHLORIDE
  10. LIVALO [Concomitant]
     Active Substance: PITAVASTATIN CALCIUM
  11. POTASSIUM [Concomitant]
     Active Substance: POTASSIUM

REACTIONS (3)
  - Pruritus [Recovering/Resolving]
  - Headache [Recovering/Resolving]
  - Burning sensation [Recovering/Resolving]

NARRATIVE: CASE EVENT DATE: 20170817
